FAERS Safety Report 20501140 (Version 2)
Quarter: 2022Q1

REPORT INFORMATION
  Report Type: Report from Study
  Country: US (occurrence: US)
  Receive Date: 20220222
  Receipt Date: 20220301
  Transmission Date: 20220423
  Serious: Yes (Hospitalization, Other)
  Sender: FDA-Public Use
  Company Number: US-BRISTOL-MYERS SQUIBB COMPANY-BMS-2022-023118

PATIENT
  Age: 73 Year
  Sex: Male
  Weight: 89 kg

DRUGS (2)
  1. NIVOLUMAB [Suspect]
     Active Substance: NIVOLUMAB
     Indication: Adenocarcinoma gastric
     Dosage: 240 MILLIGRAM, Q2WK
     Route: 042
     Dates: start: 20211122, end: 20211220
  2. FLUOROURACIL [Suspect]
     Active Substance: FLUOROURACIL
     Indication: Adenocarcinoma gastric
     Dosage: 2600 MILLIGRAM, QD
     Route: 042
     Dates: start: 20211122, end: 20211224

REACTIONS (2)
  - Adrenal insufficiency [Unknown]
  - Dyspnoea [Unknown]

NARRATIVE: CASE EVENT DATE: 20220210
